FAERS Safety Report 21425501 (Version 1)
Quarter: 2022Q4

REPORT INFORMATION
  Report Type: Report from Study
  Country: TW (occurrence: TW)
  Receive Date: 20221008
  Receipt Date: 20221008
  Transmission Date: 20230112
  Serious: Yes (Death, Hospitalization, Other)
  Sender: FDA-Public Use
  Company Number: TW-ABBVIE-20P-153-3699714-00

PATIENT
  Age: 80 Year
  Sex: Male
  Weight: 63.1 kg

DRUGS (11)
  1. VENETOCLAX [Suspect]
     Active Substance: VENETOCLAX
     Indication: Myelodysplastic syndrome
     Dosage: DAYS 1 - 14 OF EACH 28-DAY CYCLE
     Route: 048
     Dates: start: 20201130, end: 20201213
  2. VENETOCLAX [Suspect]
     Active Substance: VENETOCLAX
     Indication: Myelodysplastic syndrome
     Dosage: DAY 1-14 OF 28 DAY CYCLE
     Route: 048
     Dates: start: 20201130, end: 20201213
  3. FEBUXOSTAT F.C [Concomitant]
     Indication: Prophylaxis
     Route: 048
     Dates: start: 20200914, end: 20210108
  4. LORAZEPAM [Concomitant]
     Active Substance: LORAZEPAM
     Indication: Insomnia
     Dosage: HS
     Route: 048
     Dates: start: 20200914, end: 20210127
  5. CEPHRADINE [Concomitant]
     Active Substance: CEPHRADINE
     Indication: Infection prophylaxis
     Route: 048
     Dates: start: 20201207, end: 20201217
  6. FAMOTIDINE [Concomitant]
     Active Substance: FAMOTIDINE
     Indication: Gastrooesophageal reflux disease
     Route: 048
     Dates: start: 20201207, end: 20210108
  7. LEVOCETIRIZINE [Concomitant]
     Active Substance: LEVOCETIRIZINE
     Indication: Pruritus
     Route: 048
     Dates: start: 20201214, end: 20201217
  8. TRIAMCINOLONE [Concomitant]
     Active Substance: TRIAMCINOLONE
     Indication: Pruritus
     Route: 061
     Dates: start: 20201214, end: 20201220
  9. VITAMIN B12 [Concomitant]
     Active Substance: CYANOCOBALAMIN
     Indication: Ocular hyperaemia
     Route: 061
     Dates: start: 20201216, end: 20210208
  10. FILGASTIM [Concomitant]
     Indication: Neutropenia
     Route: 058
     Dates: start: 20201214, end: 20201214
  11. AZACITIDINE [Suspect]
     Active Substance: AZACITIDINE
     Indication: Myelodysplastic syndrome
     Dosage: 7 DAYS WITHIN THE FIRST 9 CALENDAR DAYS OF EACH 28-DAY CYCLE
     Route: 058
     Dates: start: 20201130, end: 20201206

REACTIONS (4)
  - Escherichia sepsis [Fatal]
  - Febrile neutropenia [Unknown]
  - Bronchopulmonary aspergillosis [Unknown]
  - Escherichia sepsis [Recovered/Resolved]

NARRATIVE: CASE EVENT DATE: 20201217
